FAERS Safety Report 5520430-4 (Version None)
Quarter: 2007Q4

REPORT INFORMATION
  Report Type: 
  Country: None (occurrence: None)
  Receive Date: 20071114
  Receipt Date: 20071031
  Transmission Date: 20080405
  Serious: Yes (Hospitalization)
  Sender: FDA-Public Use
  Company Number: SPV1-2007-04763

PATIENT
  Age: 83 Year
  Sex: Male
  Weight: 61.2 kg

DRUGS (3)
  1. PENTASA [Suspect]
     Indication: COLITIS ULCERATIVE
     Dosage: 4X/DAY:QID, ORAL; 500 MG, 4X/4DAY:QID, ORAL
     Route: 048
     Dates: start: 19920101, end: 20071010
  2. COUMADIN [Concomitant]
  3. PLAVIX [Concomitant]

REACTIONS (3)
  - DRUG LEVEL FLUCTUATING [None]
  - GASTRIC ULCER [None]
  - POST PROCEDURAL HAEMORRHAGE [None]
